FAERS Safety Report 24533704 (Version 2)
Quarter: 2025Q1

REPORT INFORMATION
  Report Type: Spontaneous
  Country: US (occurrence: US)
  Receive Date: 20241022
  Receipt Date: 20250128
  Transmission Date: 20250409
  Serious: Yes (Other)
  Sender: KEDRION
  Company Number: US-KEDRION-009702

PATIENT
  Age: 62 Year
  Sex: Female

DRUGS (1)
  1. HUMAN IMMUNOGLOBULIN G [Suspect]
     Active Substance: HUMAN IMMUNOGLOBULIN G
     Indication: Guillain-Barre syndrome
     Route: 042

REACTIONS (4)
  - Cerebral vasoconstriction [Recovering/Resolving]
  - Ischaemia [Recovering/Resolving]
  - Off label use [Unknown]
  - Therapy responder [Unknown]
